FAERS Safety Report 25617057 (Version 2)
Quarter: 2025Q3

REPORT INFORMATION
  Report Type: Spontaneous
  Country: EU (occurrence: EU)
  Receive Date: 20250729
  Receipt Date: 20250812
  Transmission Date: 20251020
  Serious: Yes (Death, Other)
  Sender: CELLTRION
  Company Number: EU-ROCHE-10000262360

PATIENT

DRUGS (4)
  1. BEVACIZUMAB [Suspect]
     Active Substance: BEVACIZUMAB
     Indication: Transitional cell carcinoma
     Route: 065
     Dates: start: 202003
  2. GEMCITABINE [Suspect]
     Active Substance: GEMCITABINE
     Indication: Transitional cell carcinoma
     Route: 065
     Dates: start: 202003
  3. PEMETREXED [Suspect]
     Active Substance: PEMETREXED
     Indication: Transitional cell carcinoma
     Route: 065
  4. ERLOTINIB [Suspect]
     Active Substance: ERLOTINIB
     Indication: Transitional cell carcinoma
     Route: 048

REACTIONS (6)
  - Pulmonary embolism [Fatal]
  - Pancytopenia [Unknown]
  - Bronchostenosis [Unknown]
  - Thrombocytopenia [Unknown]
  - Disease progression [Unknown]
  - Intentional product use issue [Unknown]
